FAERS Safety Report 11672313 (Version 2)
Quarter: 2016Q2

REPORT INFORMATION
  Report Type: Spontaneous
  Country: US (occurrence: US)
  Receive Date: 20151028
  Receipt Date: 20160530
  Transmission Date: 20160815
  Serious: No
  Sender: FDA-Public Use
  Company Number: US-LEO PHARMA-237776

PATIENT
  Age: 50 Year
  Sex: Male

DRUGS (1)
  1. PICATO [Suspect]
     Active Substance: INGENOL MEBUTATE
     Indication: ACTINIC KERATOSIS
     Dates: start: 20151018

REACTIONS (4)
  - Application site pain [Recovered/Resolved]
  - Inappropriate schedule of drug administration [Unknown]
  - Application site exfoliation [Recovered/Resolved]
  - Application site erythema [Recovered/Resolved]
